FAERS Safety Report 26040526 (Version 1)
Quarter: 2025Q4

REPORT INFORMATION
  Report Type: Spontaneous
  Country: US (occurrence: None)
  Receive Date: 20251112
  Receipt Date: 20251112
  Transmission Date: 20260118
  Serious: No
  Sender: FDA-CTU
  Company Number: None

PATIENT
  Age: 79 Year
  Sex: Female
  Weight: 61.23 kg

DRUGS (1)
  1. KISQALI [Suspect]
     Active Substance: RIBOCICLIB SUCCINATE
     Indication: Gastric cancer
     Dosage: FREQUENCY : DAILY;?
     Route: 048

REACTIONS (3)
  - Dizziness [None]
  - Staphylococcal infection [None]
  - Localised infection [None]

NARRATIVE: CASE EVENT DATE: 20251112
